FAERS Safety Report 6727695-1 (Version None)
Quarter: 2010Q2

REPORT INFORMATION
  Report Type: 
  Country: None (occurrence: None)
  Receive Date: 20100512
  Receipt Date: 20100427
  Transmission Date: 20101027
  Serious: Yes (Other)
  Sender: FDA-Public Use
  Company Number: 2010SP001278

PATIENT
  Sex: Female

DRUGS (1)
  1. OMNARIS [Suspect]
     Indication: SEASONAL ALLERGY
     Dosage: 200 UG;QD;NASAL
     Route: 045
     Dates: start: 20100414, end: 20100415

REACTIONS (3)
  - DRUG HYPERSENSITIVITY [None]
  - DYSPNOEA [None]
  - RASH PRURITIC [None]
